FAERS Safety Report 18451784 (Version 1)
Quarter: 2020Q4

REPORT INFORMATION
  Report Type: Spontaneous
  Country: US (occurrence: US)
  Receive Date: 20201030
  Receipt Date: 20201030
  Transmission Date: 20210114
  Serious: Yes (Other)
  Sender: FDA-Public Use
  Company Number: None

PATIENT
  Age: 57 Year
  Sex: Female
  Weight: 80.55 kg

DRUGS (2)
  1. PREDNISONE. [Suspect]
     Active Substance: PREDNISONE
  2. RADICAVA [Suspect]
     Active Substance: EDARAVONE
     Indication: AMYOTROPHIC LATERAL SCLEROSIS
     Dosage: ?          OTHER FREQUENCY:60MG DAILY X14DAYS;?
     Route: 042
     Dates: start: 20200923, end: 20201006

REACTIONS (5)
  - Rash [None]
  - Therapy interrupted [None]
  - Rash pruritic [None]
  - Arthropod bite [None]
  - Rash erythematous [None]

NARRATIVE: CASE EVENT DATE: 20200923
